FAERS Safety Report 17903827 (Version 2)
Quarter: 2021Q2

REPORT INFORMATION
  Report Type: Report from Study
  Country: US (occurrence: US)
  Receive Date: 20200616
  Receipt Date: 20210629
  Transmission Date: 20210717
  Serious: Yes (Life-Threatening, Hospitalization)
  Sender: FDA-Public Use
  Company Number: US-TEVA-2020-US-1509961

PATIENT
  Age: 71 Year
  Sex: Female

DRUGS (6)
  1. MYCOPHENOLATE MOFETIL. [Suspect]
     Active Substance: MYCOPHENOLATE MOFETIL
     Indication: CUTANEOUS VASCULITIS
     Route: 065
  2. MYCOPHENOLATE MOFETIL. [Suspect]
     Active Substance: MYCOPHENOLATE MOFETIL
     Indication: IMMUNOSUPPRESSANT DRUG THERAPY
  3. DAPSONE. [Suspect]
     Active Substance: DAPSONE
     Indication: CUTANEOUS VASCULITIS
     Route: 065
  4. PREDNISONE. [Suspect]
     Active Substance: PREDNISONE
     Indication: IMMUNOSUPPRESSANT DRUG THERAPY
  5. DAPSONE. [Suspect]
     Active Substance: DAPSONE
     Indication: IMMUNOSUPPRESSANT DRUG THERAPY
  6. PREDNISONE. [Suspect]
     Active Substance: PREDNISONE
     Indication: CUTANEOUS VASCULITIS
     Route: 065

REACTIONS (6)
  - Cytomegalovirus colitis [Recovering/Resolving]
  - Ulcer [Unknown]
  - Anaemia [Unknown]
  - Pneumatosis [Unknown]
  - Large intestine perforation [Recovered/Resolved]
  - Leukopenia [Unknown]
